FAERS Safety Report 4449808-7 (Version None)
Quarter: 2004Q3

REPORT INFORMATION
  Report Type: 
  Country: None (occurrence: None)
  Receive Date: 20040802
  Receipt Date: 20030606
  Transmission Date: 20050211
  Serious: Yes (Other)
  Sender: FDA-Public Use
  Company Number: US-SHR-03-008943

PATIENT
  Age: 20 Year
  Sex: Female
  Weight: 78.5 kg

DRUGS (1)
  1. MAGNEVIST [Suspect]
     Indication: NUCLEAR MAGNETIC RESONANCE IMAGING BRAIN
     Dosage: 15.7 ML, 1 DOSE, INTRAVENOUS
     Route: 042
     Dates: start: 20030606, end: 20030606

REACTIONS (6)
  - DYSPNOEA [None]
  - NAUSEA [None]
  - PRURITUS [None]
  - RASH [None]
  - SNEEZING [None]
  - URTICARIA [None]
